FAERS Safety Report 5197445-1 (Version None)
Quarter: 2006Q4

REPORT INFORMATION
  Report Type: 
  Country: None (occurrence: None)
  Receive Date: 20060927
  Receipt Date: 20060519
  Transmission Date: 20070319
  Serious: No
  Sender: FDA-Public Use
  Company Number: US-CVT-061091

PATIENT
  Sex: Male

DRUGS (9)
  1. RANEXA [Suspect]
     Indication: ANGINA PECTORIS
     Dosage: SEE IMAGE
     Route: 048
     Dates: start: 20060501
  2. RANEXA [Suspect]
     Indication: ANGINA PECTORIS
     Dosage: SEE IMAGE
     Route: 048
     Dates: start: 20060519
  3. MINITRAN [Suspect]
     Dosage: NASAL
     Route: 045
  4. NEXIUM [Concomitant]
  5. ALTACE [Concomitant]
  6. TOPRAL (SULTOPRIDE) [Concomitant]
  7. LIPITOR /01326101/ (ATORVASTATIN) [Concomitant]
  8. NORVASC /00972401/ (AMLODIPINE) [Concomitant]
  9. HYDROCHLOROTHIAZIDE [Concomitant]

REACTIONS (2)
  - FEELING JITTERY [None]
  - INSOMNIA [None]
